FAERS Safety Report 9504136 (Version 1)
Quarter: 2013Q3

REPORT INFORMATION
  Report Type: Spontaneous
  Country: US (occurrence: None)
  Receive Date: 20130905
  Receipt Date: 20130905
  Transmission Date: 20140515
  Serious: Yes (Life-Threatening)
  Sender: FDA-Public Use
  Company Number: None

PATIENT
  Age: 29 Year
  Sex: Male
  Weight: 62.14 kg

DRUGS (6)
  1. PRECEDEX [Suspect]
     Indication: DELIRIUM
     Route: 042
     Dates: start: 20130903, end: 20130904
  2. PRECEDEX [Suspect]
     Indication: TOXICITY TO VARIOUS AGENTS
     Route: 042
     Dates: start: 20130903, end: 20130904
  3. PRECEDEX [Suspect]
     Indication: ALCOHOL USE
     Route: 042
     Dates: start: 20130903, end: 20130904
  4. HALDOL [Concomitant]
  5. RISPERDOL [Concomitant]
  6. METHADONE [Concomitant]

REACTIONS (1)
  - Torsade de pointes [None]
